FAERS Safety Report 20199359 (Version 1)
Quarter: 2021Q4

REPORT INFORMATION
  Report Type: Report from Study
  Country: US (occurrence: US)
  Receive Date: 20211217
  Receipt Date: 20211217
  Transmission Date: 20220303
  Serious: Yes (Other)
  Sender: FDA-Public Use
  Company Number: US-JNJFOC-20211214002

PATIENT

DRUGS (23)
  1. BOSENTAN [Suspect]
     Active Substance: BOSENTAN
     Indication: Hypertension
     Route: 048
  2. OPSUMIT [Suspect]
     Active Substance: MACITENTAN
     Indication: Hypertension
     Route: 048
  3. VELETRI [Suspect]
     Active Substance: EPOPROSTENOL
     Indication: Hypertension
     Route: 042
  4. UPTRAVI [Suspect]
     Active Substance: SELEXIPAG
     Indication: Hypertension
     Route: 048
  5. SILDENAFIL [Suspect]
     Active Substance: SILDENAFIL
     Indication: Hypertension
     Route: 065
  6. TADALAFIL [Suspect]
     Active Substance: TADALAFIL
     Indication: Hypertension
     Route: 065
  7. BERAPROST [Suspect]
     Active Substance: BERAPROST
     Indication: Hypertension
     Route: 065
  8. NIFEDIPINE [Suspect]
     Active Substance: NIFEDIPINE
     Indication: Hypertension
     Route: 065
  9. CANDESARTAN [Suspect]
     Active Substance: CANDESARTAN
     Indication: Hypertension
     Route: 065
  10. ALTHIAZIDE [Suspect]
     Active Substance: ALTHIAZIDE
     Indication: Hypertension
     Route: 065
  11. SPIRONOLACTONE [Suspect]
     Active Substance: SPIRONOLACTONE
     Indication: Hypertension
     Route: 065
  12. BISOPROLOL [Suspect]
     Active Substance: BISOPROLOL
     Indication: Hypertension
     Route: 065
  13. IMIDAPRIL [Suspect]
     Active Substance: IMIDAPRIL
     Indication: Hypertension
     Route: 065
  14. AZELNIDIPINE [Suspect]
     Active Substance: AZELNIDIPINE
     Indication: Hypertension
     Route: 065
  15. AZILSARTAN KAMEDOXOMIL [Suspect]
     Active Substance: AZILSARTAN KAMEDOXOMIL
     Indication: Hypertension
     Route: 065
  16. BENDROFLUMETHIAZIDE [Suspect]
     Active Substance: BENDROFLUMETHIAZIDE
     Indication: Hypertension
  17. BENIDIPINE [Suspect]
     Active Substance: BENIDIPINE
     Indication: Hypertension
     Route: 065
  18. CILNIDIPINE [Suspect]
     Active Substance: CILNIDIPINE
     Indication: Hypertension
     Route: 065
  19. DOXAZOSIN [Suspect]
     Active Substance: DOXAZOSIN MESYLATE
     Indication: Hypertension
     Route: 065
  20. LERCANIDIPINE [Suspect]
     Active Substance: LERCANIDIPINE
     Indication: Hypertension
     Route: 065
  21. NICARDIPINE [Suspect]
     Active Substance: NICARDIPINE
     Indication: Hypertension
     Route: 065
  22. RILMENIDINE [Suspect]
     Active Substance: RILMENIDINE
     Indication: Hypertension
     Route: 065
  23. TELMISARTAN [Suspect]
     Active Substance: TELMISARTAN
     Indication: Hypertension
     Route: 065

REACTIONS (18)
  - Pleural infection [Unknown]
  - Pulmonary embolism [Unknown]
  - Pulmonary oedema [Unknown]
  - Pneumothorax [Unknown]
  - Respiratory failure [Unknown]
  - Lung disorder [Unknown]
  - Respiration abnormal [Unknown]
  - Bronchospasm [Unknown]
  - Respiratory syncytial virus infection [Unknown]
  - Pulmonary vascular disorder [Unknown]
  - Respiratory disorder [Unknown]
  - Bronchial disorder [Unknown]
  - Pleural effusion [Unknown]
  - Respiratory disorder [Unknown]
  - Immune system disorder [Unknown]
  - Cough [Unknown]
  - Lower respiratory tract infection [Unknown]
  - Respiratory tract inflammation [Unknown]
